FAERS Safety Report 7977297-4 (Version None)
Quarter: 2011Q4

REPORT INFORMATION
  Report Type: 
  Country: None (occurrence: None)
  Receive Date: 20111213
  Receipt Date: 20111115
  Transmission Date: 20120403
  Serious: No
  Sender: FDA-Public Use
  Company Number: US-AMGEN-USASP2011039781

PATIENT
  Age: 39 Year
  Sex: Female
  Weight: 62.132 kg

DRUGS (2)
  1. ENBREL [Suspect]
     Indication: RHEUMATOID ARTHRITIS
     Dosage: 50 MG, QWK
     Dates: start: 20110810, end: 20110817
  2. METHOTREXATE [Concomitant]
     Dosage: 4 MG, QD

REACTIONS (5)
  - INJECTION SITE ERYTHEMA [None]
  - INJECTION SITE HAEMATOMA [None]
  - ARTHRALGIA [None]
  - DIZZINESS [None]
  - JOINT SWELLING [None]
